FAERS Safety Report 8933003 (Version 1)
Quarter: 2013Q1

REPORT INFORMATION
  Report Type: Spontaneous
  Country: CA (occurrence: None)
  Receive Date: 20121127
  Receipt Date: 20121127
  Transmission Date: 20140127
  Serious: Yes (Life-Threatening, Hospitalization)
  Sender: FDA-Public Use
  Company Number: None

PATIENT
  Age: 14 Year
  Sex: Male
  Weight: 48 kg

DRUGS (4)
  1. ZOMETA [Suspect]
     Dates: start: 20121030
  2. CYCLOPHOSPHAMIDE [Suspect]
     Route: 042
     Dates: start: 20121030
  3. VITAMIN D [Concomitant]
  4. CALCIUM [Concomitant]

REACTIONS (5)
  - Vomiting [None]
  - Pyrexia [None]
  - Hypotension [None]
  - Chills [None]
  - Pulse abnormal [None]
